FAERS Safety Report 7393515-8 (Version None)
Quarter: 2011Q2

REPORT INFORMATION
  Report Type: 
  Country: None (occurrence: None)
  Receive Date: 20110405
  Receipt Date: 20110321
  Transmission Date: 20111010
  Serious: Yes (Hospitalization, Other)
  Sender: FDA-Public Use
  Company Number: US-JNJFOC-20110308764

PATIENT
  Sex: Female
  Weight: 83.92 kg

DRUGS (5)
  1. REMICADE [Suspect]
     Indication: RHEUMATOID ARTHRITIS
     Route: 042
  2. FOLIC ACID [Concomitant]
     Indication: NUTRITIONAL SUPPORT
  3. DICLOFENAC SODIUM [Concomitant]
     Indication: INFLAMMATION
     Route: 048
  4. ACIPHEX [Suspect]
     Indication: GASTROOESOPHAGEAL REFLUX DISEASE
     Route: 048
  5. PREMARIN [Concomitant]
     Indication: HORMONE REPLACEMENT THERAPY

REACTIONS (10)
  - BLOOD CHOLESTEROL INCREASED [None]
  - CHOLELITHIASIS [None]
  - PALPITATIONS [None]
  - SLUGGISHNESS [None]
  - ABDOMINAL DISCOMFORT [None]
  - HEADACHE [None]
  - MALAISE [None]
  - ATRIAL FIBRILLATION [None]
  - NASAL SEPTUM DEVIATION [None]
  - GASTROOESOPHAGEAL REFLUX DISEASE [None]
